FAERS Safety Report 6018063-9 (Version None)
Quarter: 2008Q4

REPORT INFORMATION
  Report Type: 
  Country: None (occurrence: None)
  Receive Date: 20081223
  Receipt Date: 20081212
  Transmission Date: 20090506
  Serious: Yes (Hospitalization, Disabling, Other)
  Sender: FDA-Public Use
  Company Number: DK-PFIZER INC-2008154818

PATIENT

DRUGS (1)
  1. CYTOTEC [Suspect]
     Indication: LABOUR INDUCTION
     Dosage: UNK
     Route: 067
     Dates: start: 20071226, end: 20071227

REACTIONS (6)
  - HYSTERECTOMY [None]
  - OFF LABEL USE [None]
  - POSTPARTUM HYPOPITUITARISM [None]
  - RETAINED PLACENTA OR MEMBRANES [None]
  - UTERINE RUPTURE [None]
  - VAGINAL HAEMORRHAGE [None]
